FAERS Safety Report 18287490 (Version 2)
Quarter: 2020Q3

REPORT INFORMATION
  Report Type: Report from Study
  Country: US (occurrence: US)
  Receive Date: 20200921
  Receipt Date: 20200923
  Transmission Date: 20201103
  Serious: No
  Sender: FDA-Public Use
  Company Number: NVSC2020US255578

PATIENT
  Sex: Male

DRUGS (1)
  1. XIIDRA [Suspect]
     Active Substance: LIFITEGRAST
     Indication: EYE DISORDER
     Dosage: UNK
     Route: 065

REACTIONS (2)
  - Eye disorder [Unknown]
  - Condition aggravated [Unknown]
